FAERS Safety Report 9373640 (Version 1)
Quarter: 2013Q2

REPORT INFORMATION
  Report Type: Spontaneous
  Country: GB (occurrence: GB)
  Receive Date: 20130627
  Receipt Date: 20130627
  Transmission Date: 20140414
  Serious: Yes (Other)
  Sender: FDA-Public Use
  Company Number: GB-RB-055291-13

PATIENT
  Age: 43 Year
  Sex: Male

DRUGS (6)
  1. SUBOXONE UNSPECIFIED [Suspect]
     Indication: DRUG DEPENDENCE
     Dosage: DOSING DETAILS UNKNOWN
     Route: 065
  2. SUBUTEX [Suspect]
     Dosage: OVER THE CORSE OF THE LAST YEAR CAME DOWN TO 2 MG DAILY
     Route: 065
  3. SUBUTEX [Suspect]
     Indication: DRUG DEPENDENCE
     Route: 065
     Dates: end: 201306
  4. SUBUTEX [Suspect]
     Route: 065
     Dates: start: 201306
  5. OLANZAPINE [Concomitant]
     Indication: SCHIZOPHRENIA, PARANOID TYPE
     Dosage: DOSING DETAILS UNKNOWN, HIGH DOSE
     Route: 065
  6. DIAZEPAM [Concomitant]
     Indication: SCHIZOPHRENIA, PARANOID TYPE
     Dosage: DOSING DETAILS UNKNOWN; HIGH DOSE
     Route: 065

REACTIONS (5)
  - Schizophrenia, paranoid type [Unknown]
  - Condition aggravated [Unknown]
  - Hallucination, auditory [Unknown]
  - Condition aggravated [Unknown]
  - Distractibility [Unknown]
